FAERS Safety Report 20999165 (Version 18)
Quarter: 2023Q4

REPORT INFORMATION
  Report Type: Report from Study
  Country: US (occurrence: US)
  Receive Date: 20220623
  Receipt Date: 20231230
  Transmission Date: 20240110
  Serious: Yes (Hospitalization, Other)
  Sender: FDA-Public Use
  Company Number: US-NOVARTISTESTPH-NVSC2022US143059

PATIENT
  Age: 34 Year
  Sex: Female
  Weight: 99.7 kg

DRUGS (4)
  1. KESIMPTA [Suspect]
     Active Substance: OFATUMUMAB
     Indication: Multiple sclerosis
     Dosage: 20 MG, QMO
     Route: 058
     Dates: start: 20220613
  2. TAMIFLU [Concomitant]
     Active Substance: OSELTAMIVIR PHOSPHATE
     Indication: Antiviral prophylaxis
     Dosage: UNK (FOR 5 DAYS)
     Route: 065
     Dates: start: 20221115
  3. PROZAC [Concomitant]
     Active Substance: FLUOXETINE HYDROCHLORIDE
     Indication: Product used for unknown indication
     Dosage: UNK
     Route: 065
  4. PROZAC [Concomitant]
     Active Substance: FLUOXETINE HYDROCHLORIDE
     Dosage: UNK (INCREASED DOSE)
     Route: 065

REACTIONS (11)
  - Perineal abscess [Unknown]
  - Accidental exposure to product [Recovered/Resolved]
  - Incorrect dose administered by device [Recovered/Resolved]
  - Device defective [Recovered/Resolved]
  - Device leakage [Unknown]
  - Inappropriate schedule of product administration [Unknown]
  - Fall [Unknown]
  - Abdominal distension [Unknown]
  - Head injury [Not Recovered/Not Resolved]
  - Upper limb fracture [Not Recovered/Not Resolved]
  - Joint range of motion decreased [Unknown]

NARRATIVE: CASE EVENT DATE: 20220613
